FAERS Safety Report 25644635 (Version 2)
Quarter: 2025Q3

REPORT INFORMATION
  Report Type: Report from Study
  Country: US (occurrence: US)
  Receive Date: 20250805
  Receipt Date: 20250824
  Transmission Date: 20251020
  Serious: Yes (Hospitalization)
  Sender: SANOFI AVENTIS
  Company Number: US-SA-SAC20230103000543

PATIENT
  Age: 70 Year
  Sex: Female
  Weight: 110.8 kg

DRUGS (35)
  1. ISATUXIMAB-IRFC [Suspect]
     Active Substance: ISATUXIMAB-IRFC
     Indication: Plasma cell myeloma refractory
     Dosage: 1100 MG, QW
     Route: 065
     Dates: start: 20220427, end: 20220529
  2. ISATUXIMAB-IRFC [Suspect]
     Active Substance: ISATUXIMAB-IRFC
     Dosage: 1100 MG, BIW
     Dates: start: 20220530, end: 20220612
  3. ISATUXIMAB-IRFC [Suspect]
     Active Substance: ISATUXIMAB-IRFC
     Dosage: 1100 MG, BIW
     Dates: start: 20220627, end: 20220711
  4. ISATUXIMAB-IRFC [Suspect]
     Active Substance: ISATUXIMAB-IRFC
     Dosage: 1100 MG, BIW
     Dates: start: 20220724, end: 20220806
  5. ISATUXIMAB-IRFC [Suspect]
     Active Substance: ISATUXIMAB-IRFC
     Dosage: 1100 MG, BIW
     Dates: start: 20220824, end: 20220910
  6. ISATUXIMAB-IRFC [Suspect]
     Active Substance: ISATUXIMAB-IRFC
     Dosage: 1100 MG, BIW
     Dates: start: 20221003, end: 20221007
  7. ISATUXIMAB-IRFC [Suspect]
     Active Substance: ISATUXIMAB-IRFC
     Dosage: 1100 MG, BIW
     Dates: start: 20221017, end: 20221029
  8. POMALIDOMIDE [Suspect]
     Active Substance: POMALIDOMIDE
     Indication: Plasma cell myeloma refractory
     Dosage: 2 MG, QD
     Route: 065
     Dates: start: 20220427, end: 20220529
  9. POMALIDOMIDE [Suspect]
     Active Substance: POMALIDOMIDE
     Dosage: 1 MG, QD
     Dates: start: 20220530, end: 20220612
  10. POMALIDOMIDE [Suspect]
     Active Substance: POMALIDOMIDE
     Dosage: 1 MG, QD
     Dates: start: 20220627, end: 20220711
  11. POMALIDOMIDE [Suspect]
     Active Substance: POMALIDOMIDE
     Dosage: 1 MG, QD
     Dates: start: 20220724, end: 20220806
  12. POMALIDOMIDE [Suspect]
     Active Substance: POMALIDOMIDE
     Dosage: 1 MG, QD
     Dates: start: 20220824, end: 20220910
  13. POMALIDOMIDE [Suspect]
     Active Substance: POMALIDOMIDE
     Dosage: 1 MG, QD
     Dates: start: 20221017, end: 20221029
  14. DEXAMETHASONE [Suspect]
     Active Substance: DEXAMETHASONE
     Indication: Plasma cell myeloma refractory
     Dosage: 40 MG, QW
     Route: 065
     Dates: start: 20220427, end: 20220529
  15. DEXAMETHASONE [Suspect]
     Active Substance: DEXAMETHASONE
     Dosage: 40 MG, BIW
     Dates: start: 20220530, end: 20220612
  16. DEXAMETHASONE [Suspect]
     Active Substance: DEXAMETHASONE
     Dosage: 40 MG, BIW
     Dates: start: 20220627, end: 20220711
  17. DEXAMETHASONE [Suspect]
     Active Substance: DEXAMETHASONE
     Dosage: 40 MG, BIW
     Dates: start: 20220724, end: 20220806
  18. DEXAMETHASONE [Suspect]
     Active Substance: DEXAMETHASONE
     Dosage: 40 MG, BIW
     Dates: start: 20220824, end: 20221010
  19. DEXAMETHASONE [Suspect]
     Active Substance: DEXAMETHASONE
     Dosage: 40 MG, BIW
     Dates: start: 20221003, end: 20221007
  20. DEXAMETHASONE [Suspect]
     Active Substance: DEXAMETHASONE
     Dosage: 40 MG, BIW
     Dates: start: 20221017, end: 20221029
  21. ACETAMINOPHEN [Concomitant]
     Active Substance: ACETAMINOPHEN
     Indication: Premedication
     Dates: start: 20220427
  22. FAMOTIDINE [Concomitant]
     Active Substance: FAMOTIDINE
     Indication: Premedication
     Dates: start: 20220427
  23. DIPHENHYDRAMINE [Concomitant]
     Active Substance: DIPHENHYDRAMINE
     Indication: Premedication
     Dates: start: 20220427
  24. INSULIN NOS [Concomitant]
     Active Substance: INSULIN NOS
     Indication: Type 2 diabetes mellitus
     Dates: start: 20191118
  25. APIXABAN [Concomitant]
     Active Substance: APIXABAN
     Indication: Hypertension
     Dates: start: 20190929
  26. APIXABAN [Concomitant]
     Active Substance: APIXABAN
     Indication: Deep vein thrombosis
  27. APIXABAN [Concomitant]
     Active Substance: APIXABAN
     Indication: Coronary artery disease
  28. CALCIUM [Concomitant]
     Active Substance: CALCIUM
     Indication: Osteoporosis
     Dates: start: 20160512
  29. ADVAIR HFA [Concomitant]
     Active Substance: FLUTICASONE PROPIONATE\SALMETEROL XINAFOATE
     Indication: Chronic obstructive pulmonary disease
     Route: 055
     Dates: start: 20210902
  30. METFORMIN [Concomitant]
     Active Substance: METFORMIN HYDROCHLORIDE
     Indication: Type 2 diabetes mellitus
     Dates: start: 20131001
  31. METOPROLOL [Concomitant]
     Active Substance: METOPROLOL
     Indication: Hypertension
     Dates: start: 20131001
  32. LYRICA [Concomitant]
     Active Substance: PREGABALIN
     Dates: start: 20160221
  33. OMEPRAZOLE [Concomitant]
     Active Substance: OMEPRAZOLE
     Indication: Gastrooesophageal reflux disease
     Dates: start: 20160729
  34. CITALOPRAM [Concomitant]
     Active Substance: CITALOPRAM
     Indication: Major depression
     Dates: start: 20131001
  35. AMLODIPINE [Concomitant]
     Active Substance: AMLODIPINE BESYLATE
     Indication: Hypertension
     Dates: start: 20220404

REACTIONS (4)
  - Bacteraemia [Recovered/Resolved]
  - Pain in extremity [Recovered/Resolved]
  - Urinary tract infection [Recovered/Resolved]
  - Peripheral swelling [Recovered/Resolved]

NARRATIVE: CASE EVENT DATE: 20220613
